FAERS Safety Report 4504101-9 (Version None)
Quarter: 2004Q4

REPORT INFORMATION
  Report Type: 
  Country: None (occurrence: None)
  Receive Date: 20041115
  Receipt Date: 20041029
  Transmission Date: 20050328
  Serious: Yes (Other)
  Sender: FDA-Public Use
  Company Number: PHEH2004US09319

PATIENT
  Age: 80 Year
  Sex: Male

DRUGS (3)
  1. VISUDYNE [Suspect]
     Indication: MACULAR DEGENERATION
     Dosage: 2 MG/ML ONCE IV
     Route: 042
     Dates: start: 20001128, end: 20001128
  2. ASPIRIN [Concomitant]
  3. M.V.I. [Concomitant]

REACTIONS (12)
  - BLINDNESS UNILATERAL [None]
  - CHOROIDAL NEOVASCULARISATION [None]
  - DISEASE PROGRESSION [None]
  - FIBROSIS [None]
  - HEARING IMPAIRED [None]
  - IATROGENIC INJURY [None]
  - MACULAR DEGENERATION [None]
  - MEDICATION ERROR [None]
  - RETINAL DETACHMENT [None]
  - RETINAL DISORDER [None]
  - RETINAL HAEMORRHAGE [None]
  - SCOTOMA [None]
